FAERS Safety Report 13522598 (Version 3)
Quarter: 2017Q2

REPORT INFORMATION
  Report Type: Spontaneous
  Country: CH (occurrence: RO)
  Receive Date: 20170508
  Receipt Date: 20170605
  Transmission Date: 20170830
  Serious: Yes (Life-Threatening, Hospitalization)
  Sender: FDA-Public Use
  Company Number: CH-LPDUSPRD-20170561

PATIENT
  Age: 34 Year
  Sex: Female
  Weight: 68 kg

DRUGS (2)
  1. VENOFER [Suspect]
     Active Substance: IRON SUCROSE
     Dosage: 200 MG
     Route: 041
     Dates: start: 201311
  2. EUTHYROX [Concomitant]
     Active Substance: LEVOTHYROXINE SODIUM
     Dosage: 50 MCG
     Route: 065

REACTIONS (21)
  - Hypersensitivity [Unknown]
  - Dyspnoea [Unknown]
  - Coagulopathy [Unknown]
  - Placental disorder [Unknown]
  - Premature delivery [Unknown]
  - Thrombosis [Unknown]
  - Exposure during pregnancy [Unknown]
  - Vaginal discharge [Unknown]
  - Haemorrhage [Unknown]
  - Amniotic cavity infection [Unknown]
  - Pulmonary embolism [Unknown]
  - Uterine contractions during pregnancy [Unknown]
  - Chest pain [Unknown]
  - Cough [Unknown]
  - Fibrin D dimer increased [Unknown]
  - Product preparation error [Unknown]
  - Foetal movement disorder [Unknown]
  - Epistaxis [Unknown]
  - Disseminated intravascular coagulation [Unknown]
  - Platelet count decreased [Unknown]
  - Venous thrombosis [Unknown]

NARRATIVE: CASE EVENT DATE: 201311
